FAERS Safety Report 6978161-X (Version None)
Quarter: 2010Q3

REPORT INFORMATION
  Report Type: 
  Country: None (occurrence: None)
  Receive Date: 20100913
  Receipt Date: 20100901
  Transmission Date: 20110219
  Serious: Yes (Other)
  Sender: FDA-Public Use
  Company Number: US-JNJFOC-20100901145

PATIENT
  Sex: Female
  Weight: 64.41 kg

DRUGS (4)
  1. REMICADE [Suspect]
     Indication: CROHN'S DISEASE
     Dosage: INITIAL DOSE
     Route: 042
  2. TRAMADOL HCL [Concomitant]
     Indication: PAIN
     Dosage: 1 DAILY AS NECESSARY
  3. PROTONIX [Concomitant]
     Indication: GASTROOESOPHAGEAL REFLUX DISEASE
  4. ASACOL [Concomitant]
     Indication: CROHN'S DISEASE

REACTIONS (2)
  - GAIT DISTURBANCE [None]
  - PAIN IN EXTREMITY [None]
